FAERS Safety Report 9890196 (Version 1)
Quarter: 2014Q1

REPORT INFORMATION
  Report Type: Spontaneous
  Country: US (occurrence: US)
  Receive Date: 20140212
  Receipt Date: 20140212
  Transmission Date: 20141002
  Serious: No
  Sender: FDA-Public Use
  Company Number: US-BIOGENIDEC-2014BI011802

PATIENT
  Sex: Female

DRUGS (18)
  1. TECFIDERA [Suspect]
     Indication: MULTIPLE SCLEROSIS
     Route: 048
     Dates: start: 20140117
  2. TYLENOL [Concomitant]
  3. FISH OIL [Concomitant]
  4. FLAX SEED [Concomitant]
  5. IBUPROFEN [Concomitant]
  6. MAGNESIUM [Concomitant]
  7. MILK THISTLE [Concomitant]
  8. PROBIOTIC [Concomitant]
  9. VITAMIN B [Concomitant]
  10. VITAMIN D [Concomitant]
  11. LEVODOPA [Concomitant]
  12. BACLOFEN [Concomitant]
  13. DULOXETINE [Concomitant]
  14. LEVOTHYROXINE [Concomitant]
  15. FLEXERIL [Concomitant]
  16. VALACYCLOVIR [Concomitant]
  17. LITHIUM [Concomitant]
  18. MAGNESIUM [Concomitant]

REACTIONS (3)
  - Fatigue [Unknown]
  - Abdominal pain upper [Unknown]
  - Flushing [Unknown]
